FAERS Safety Report 4638127-1 (Version None)
Quarter: 2005Q2

REPORT INFORMATION
  Report Type: 
  Country: None (occurrence: None)
  Receive Date: 20050415
  Receipt Date: 20050404
  Transmission Date: 20051028
  Serious: Yes (Other)
  Sender: FDA-Public Use
  Company Number: 2005052790

PATIENT
  Age: 31 Year
  Sex: Female
  Weight: 56.6996 kg

DRUGS (6)
  1. PREDNISONE TAB [Suspect]
     Indication: MUSCLE DISORDER
     Dosage: ORAL
     Route: 048
     Dates: start: 19880101
  2. CORTISONE ACETATE [Suspect]
     Indication: MUSCLE DISORDER
     Dosage: ORAL
     Route: 048
     Dates: start: 19880101
  3. ANSAID (FLURBIPROFEN) (FLURBIPROFEN) [Suspect]
     Indication: ARTHRALGIA
  4. NABUMETONE [Suspect]
     Indication: ARTHRALGIA
  5. ALL OTHER THERAPEUTIC PRODUCTS (ALL OTHER THERAPEUTIC PRODUCTS) [Suspect]
     Indication: ARTHRALGIA
  6. VALDECOXIB [Concomitant]

REACTIONS (5)
  - ARTHRALGIA [None]
  - ARTHRITIS [None]
  - ASEPTIC NECROSIS BONE [None]
  - DRUG INEFFECTIVE [None]
  - HIP ARTHROPLASTY [None]
